FAERS Safety Report 9933940 (Version 1)
Quarter: 2014Q1

REPORT INFORMATION
  Report Type: Report from Study
  Country: US (occurrence: US)
  Receive Date: 20140228
  Receipt Date: 20140228
  Transmission Date: 20141002
  Serious: No
  Sender: FDA-Public Use
  Company Number: US-ABBVIE-14P-163-1200455-00

PATIENT
  Sex: Male
  Weight: 85.35 kg

DRUGS (5)
  1. ANDROGEL [Suspect]
     Indication: BLOOD TESTOSTERONE DECREASED
     Route: 061
     Dates: end: 201309
  2. SIMVASTATIN [Concomitant]
     Indication: BLOOD CHOLESTEROL INCREASED
  3. NIACIN [Concomitant]
     Indication: BLOOD TRIGLYCERIDES INCREASED
     Dosage: OTC
  4. OMEPRAZOLE [Concomitant]
     Indication: BARRETT^S OESOPHAGUS
  5. MULTIVITAMIN [Concomitant]
     Indication: VITAMIN SUPPLEMENTATION

REACTIONS (2)
  - Application site rash [Not Recovered/Not Resolved]
  - Hypertension [Recovering/Resolving]
